FAERS Safety Report 8111644-8 (Version None)
Quarter: 2012Q1

REPORT INFORMATION
  Report Type: 
  Country: None (occurrence: None)
  Receive Date: 20120203
  Receipt Date: 20120126
  Transmission Date: 20120608
  Serious: Yes (Hospitalization, Other)
  Sender: FDA-Public Use
  Company Number: US-US-EMD SERONO, INC.-232024J10USA

PATIENT
  Sex: Female
  Weight: 67 kg

DRUGS (17)
  1. TOPAMAX [Concomitant]
     Indication: HEADACHE
     Route: 048
     Dates: start: 20081120
  2. WELCHOL [Concomitant]
     Route: 048
     Dates: start: 20090115
  3. REBIF [Suspect]
     Route: 058
     Dates: start: 20100225
  4. PRILOSEC [Concomitant]
  5. REBIF [Suspect]
     Route: 058
  6. PREMARIN [Concomitant]
     Route: 048
     Dates: start: 20070430
  7. ACIPHEX [Concomitant]
     Route: 048
     Dates: start: 20070430
  8. NORVASC [Concomitant]
     Indication: HYPERTENSION
     Route: 048
     Dates: start: 20070430
  9. MAXZIDE [Concomitant]
     Indication: HYPERTENSION
     Route: 048
     Dates: start: 20070430
  10. PERCOCET [Concomitant]
     Route: 048
     Dates: start: 20070212
  11. PROMETHAZINE [Concomitant]
     Dates: start: 20100111
  12. MAGNESIUM HYDROXIDE TAB [Concomitant]
  13. INDERAL [Concomitant]
     Indication: HYPERTENSION
     Route: 048
     Dates: start: 20070430, end: 20100101
  14. AMANTADINE HCL [Concomitant]
     Route: 048
     Dates: start: 20080110
  15. REBIF [Suspect]
     Indication: RELAPSING-REMITTING MULTIPLE SCLEROSIS
     Route: 058
     Dates: start: 20100114, end: 20100225
  16. ASPIRIN [Concomitant]
     Indication: PREMEDICATION
  17. ZANAFLEX [Concomitant]
     Indication: MUSCLE SPASMS
     Route: 048
     Dates: start: 20080709

REACTIONS (19)
  - COLITIS ULCERATIVE [None]
  - COLITIS ISCHAEMIC [None]
  - HEART RATE DECREASED [None]
  - GLOMERULAR FILTRATION RATE DECREASED [None]
  - NAUSEA [None]
  - VOMITING [None]
  - DEHYDRATION [None]
  - GASTRIC ULCER [None]
  - VENTRICULAR EXTRASYSTOLES [None]
  - DIVERTICULITIS [None]
  - BLOOD CREATINE ABNORMAL [None]
  - WEIGHT DECREASED [None]
  - URTICARIA [None]
  - BLOOD TRIGLYCERIDES ABNORMAL [None]
  - VULVOVAGINAL BURNING SENSATION [None]
  - MIGRAINE [None]
  - DIARRHOEA [None]
  - HEADACHE [None]
  - VITAMIN D DECREASED [None]
